FAERS Safety Report 8371970-4 (Version None)
Quarter: 2012Q2

REPORT INFORMATION
  Report Type: 
  Country: None (occurrence: None)
  Receive Date: 20120518
  Receipt Date: 20120517
  Transmission Date: 20120825
  Serious: Yes (Hospitalization)
  Sender: FDA-Public Use
  Company Number: AU-ROCHE-1070096

PATIENT
  Sex: Male

DRUGS (7)
  1. OXYCONTIN [Concomitant]
  2. ACTEMRA [Suspect]
     Indication: RHEUMATOID ARTHRITIS
     Route: 065
     Dates: start: 20100504
  3. PRAVACHOL [Concomitant]
  4. CITALOPRAM HYDROBROMIDE [Concomitant]
  5. WARFARIN SODIUM [Concomitant]
  6. NAPROSYN [Concomitant]
  7. PANADOL OSTEO [Concomitant]

REACTIONS (1)
  - PULMONARY EMBOLISM [None]
